FAERS Safety Report 5069052-2 (Version None)
Quarter: 2006Q3

REPORT INFORMATION
  Report Type: 
  Country: None (occurrence: None)
  Receive Date: 20060801
  Receipt Date: 20060801
  Transmission Date: 20061208
  Serious: Yes (Other)
  Sender: FDA-Public Use
  Company Number: None

PATIENT
  Age: 74 Year
  Sex: Female

DRUGS (1)
  1. MIOCHOL-E [Suspect]
     Indication: CATARACT OPERATION
     Dosage: 20MG    ONCE    INTRAOCULAR
     Route: 031
     Dates: start: 20060719, end: 20060719

REACTIONS (1)
  - HYPHAEMA [None]
